FAERS Safety Report 10045480 (Version 2)
Quarter: 2014Q1

REPORT INFORMATION
  Report Type: Spontaneous
  Country: SE (occurrence: SE)
  Receive Date: 20140328
  Receipt Date: 20140328
  Transmission Date: 20141002
  Serious: Yes (Other)
  Sender: FDA-Public Use
  Company Number: PHHY2013SE028172

PATIENT
  Age: 62 Year
  Sex: Male
  Weight: 80 kg

DRUGS (2)
  1. RIMACTAN [Suspect]
     Indication: INFECTION
     Dosage: 900 MG, QD
     Route: 048
     Dates: start: 20121116, end: 201212
  2. ANTIBIOTICS [Concomitant]

REACTIONS (11)
  - Blood pressure increased [Unknown]
  - Anxiety [Recovered/Resolved]
  - Pain in extremity [Recovering/Resolving]
  - Infarction [Unknown]
  - Heart rate increased [Unknown]
  - Frustration [Unknown]
  - Palpitations [Unknown]
  - Decreased activity [Unknown]
  - Muscular weakness [Recovered/Resolved with Sequelae]
  - Blood pressure fluctuation [Unknown]
  - Overdose [Unknown]
